FAERS Safety Report 5192560-0 (Version None)
Quarter: 2006Q4

REPORT INFORMATION
  Report Type: 
  Country: None (occurrence: None)
  Receive Date: 20061220
  Receipt Date: 20061206
  Transmission Date: 20070319
  Serious: Yes (Death)
  Sender: FDA-Public Use
  Company Number: 2006S1000282

PATIENT

DRUGS (1)
  1. CUBICIN [Suspect]

REACTIONS (1)
  - DEATH [None]
